FAERS Safety Report 20455531 (Version 1)
Quarter: 2022Q1

REPORT INFORMATION
  Report Type: Spontaneous
  Country: US (occurrence: US)
  Receive Date: 20220210
  Receipt Date: 20220210
  Transmission Date: 20220423
  Serious: No
  Sender: FDA-Public Use
  Company Number: US-BAUSCH-BL-2022-002832

PATIENT
  Age: 37 Year
  Sex: Female

DRUGS (2)
  1. ARESTIN [Suspect]
     Active Substance: MINOCYCLINE HYDROCHLORIDE
     Indication: Gingival bleeding
     Dosage: SINGLE
     Route: 004
     Dates: start: 20220120, end: 20220125
  2. ARESTIN [Suspect]
     Active Substance: MINOCYCLINE HYDROCHLORIDE

REACTIONS (4)
  - Application site inflammation [Unknown]
  - Drug hypersensitivity [Unknown]
  - Application site discolouration [Unknown]
  - Instillation site paraesthesia [Unknown]

NARRATIVE: CASE EVENT DATE: 20220101
